FAERS Safety Report 16357680 (Version 2)
Quarter: 2019Q2

REPORT INFORMATION
  Report Type: Spontaneous
  Country: US (occurrence: US)
  Receive Date: 20190527
  Receipt Date: 20190603
  Transmission Date: 20190711
  Serious: No
  Sender: FDA-Public Use
  Company Number: US-SHIRE-US201916891

PATIENT

DRUGS (1)
  1. ADDERALL XR [Suspect]
     Active Substance: AMPHETAMINE ASPARTATE\AMPHETAMINE SULFATE\DEXTROAMPHETAMINE SACCHARATE\DEXTROAMPHETAMINE SULFATE
     Indication: SLEEP DISORDER
     Dosage: 30 MILLIGRAM, 2X/DAY:BID
     Route: 065
     Dates: start: 201704

REACTIONS (5)
  - Drug ineffective [Unknown]
  - Somnolence [Unknown]
  - Feeling abnormal [Unknown]
  - Vision blurred [Unknown]
  - Product tampering [Unknown]

NARRATIVE: CASE EVENT DATE: 20190514
